FAERS Safety Report 9984874 (Version 1)
Quarter: 2014Q1

REPORT INFORMATION
  Report Type: Report from Study
  Country: US (occurrence: US)
  Receive Date: 20140307
  Receipt Date: 20140307
  Transmission Date: 20141002
  Serious: No
  Sender: FDA-Public Use
  Company Number: US-ABBVIE-14P-163-1186005-00

PATIENT
  Age: 55 Year
  Sex: Female

DRUGS (12)
  1. HUMIRA [Suspect]
     Indication: CROHN^S DISEASE
     Dates: start: 20131205, end: 20131205
  2. HUMIRA [Suspect]
     Dates: start: 20131219, end: 20131219
  3. HUMIRA [Suspect]
  4. ATENOLOL [Concomitant]
     Indication: ORTHOSTATIC HYPOTENSION
  5. ACIPHEX [Concomitant]
     Indication: GASTROOESOPHAGEAL REFLUX DISEASE
  6. CELEXA [Concomitant]
     Indication: ANXIETY
  7. CELEXA [Concomitant]
     Indication: STRESS
  8. LIBRAX [Concomitant]
     Indication: GASTRITIS
     Dosage: PILLS
  9. LIBRAX [Concomitant]
     Indication: IRRITABLE BOWEL SYNDROME
  10. SYNTHROID [Concomitant]
     Indication: AUTOIMMUNE THYROIDITIS
  11. TRICOR [Concomitant]
     Indication: BLOOD TRIGLYCERIDES INCREASED
  12. VITAMIN B-12 [Concomitant]
     Indication: VITAMIN B12 DEFICIENCY

REACTIONS (7)
  - Productive cough [Not Recovered/Not Resolved]
  - Myalgia [Not Recovered/Not Resolved]
  - Hypoaesthesia [Not Recovered/Not Resolved]
  - Burning sensation [Not Recovered/Not Resolved]
  - Blister [Not Recovered/Not Resolved]
  - Nasopharyngitis [Not Recovered/Not Resolved]
  - Pyrexia [Not Recovered/Not Resolved]
